FAERS Safety Report 9463608 (Version 1)
Quarter: 2013Q3

REPORT INFORMATION
  Report Type: Spontaneous
  Country: IT (occurrence: IT)
  Receive Date: 20130819
  Receipt Date: 20130819
  Transmission Date: 20140515
  Serious: Yes (Hospitalization, Other)
  Sender: FDA-Public Use
  Company Number: IT-JNJFOC-20130808412

PATIENT
  Age: 9 Year
  Sex: Female

DRUGS (4)
  1. IBUPROFEN [Suspect]
     Indication: PYREXIA
     Route: 065
  2. PARACETAMOL [Suspect]
  3. PARACETAMOL [Suspect]
     Indication: PYREXIA
  4. ACETYLCYSTEINE [Suspect]
     Indication: COUGH
     Route: 065

REACTIONS (1)
  - Stevens-Johnson syndrome [Recovered/Resolved]
